FAERS Safety Report 4987702-3 (Version None)
Quarter: 2006Q2

REPORT INFORMATION
  Report Type: 
  Country: None (occurrence: None)
  Receive Date: 20060428
  Receipt Date: 20060428
  Transmission Date: 20061013
  Serious: No
  Sender: FDA-Public Use
  Company Number: None

PATIENT
  Age: 58 Year
  Sex: Male
  Weight: 97.5234 kg

DRUGS (2)
  1. ADVAIR DISKUS 250/50 [Suspect]
     Indication: DYSPNOEA
     Dosage: 1 INHALE 2 X DAILY PO
     Route: 048
     Dates: start: 20051215, end: 20060315
  2. ADVAIR DISKUS 250/50 [Suspect]
     Indication: RESPIRATORY DISORDER
     Dosage: 1 INHALE 2 X DAILY PO
     Route: 048
     Dates: start: 20051215, end: 20060315

REACTIONS (3)
  - APHONIA [None]
  - DYSPHONIA [None]
  - LARYNGITIS [None]
